FAERS Safety Report 14375699 (Version 1)
Quarter: 2018Q1

REPORT INFORMATION
  Report Type: Spontaneous
  Country: US (occurrence: US)
  Receive Date: 20180109
  Receipt Date: 20180109
  Transmission Date: 20180509
  Serious: Yes (Other)
  Sender: FDA-Public Use
  Company Number: None

PATIENT
  Sex: Female
  Weight: 104.33 kg

DRUGS (1)
  1. MIRENA [Suspect]
     Active Substance: LEVONORGESTREL
     Dates: start: 20151208

REACTIONS (6)
  - Pelvic pain [None]
  - Pregnancy with contraceptive device [None]
  - Abortion induced [None]
  - Device dislocation [None]
  - Gait disturbance [None]
  - Device related infection [None]

NARRATIVE: CASE EVENT DATE: 20170125
